FAERS Safety Report 13646558 (Version 1)
Quarter: 2017Q2

REPORT INFORMATION
  Report Type: Spontaneous
  Country: US (occurrence: US)
  Receive Date: 20170612
  Receipt Date: 20170612
  Transmission Date: 20170830
  Serious: Yes (Hospitalization, Disabling, Other)
  Sender: FDA-Public Use
  Company Number: None

PATIENT
  Age: 41 Year
  Sex: Female
  Weight: 90 kg

DRUGS (3)
  1. WELLBUTRIN [Concomitant]
     Active Substance: BUPROPION HYDROCHLORIDE
  2. PROGRAMMABLE SHUNT [Concomitant]
  3. LO/OVRAL-28 [Suspect]
     Active Substance: ETHINYL ESTRADIOL\NORGESTREL
     Indication: CYSTIC FIBROSIS
     Dosage: ?          QUANTITY:1 TABLET(S);?DAILY ORAL
     Route: 048
     Dates: start: 20030401, end: 20070401

REACTIONS (3)
  - Idiopathic intracranial hypertension [None]
  - Intracranial pressure increased [None]
  - Visual impairment [None]

NARRATIVE: CASE EVENT DATE: 20100426
